FAERS Safety Report 7018879-6 (Version None)
Quarter: 2010Q3

REPORT INFORMATION
  Report Type: 
  Country: None (occurrence: None)
  Receive Date: 20100928
  Receipt Date: 20100920
  Transmission Date: 20110219
  Serious: Yes (Other)
  Sender: FDA-Public Use
  Company Number: US-PFIZER INC-2010081230

PATIENT
  Sex: Male
  Weight: 117.9 kg

DRUGS (5)
  1. SUTENT [Suspect]
     Indication: RENAL CELL CARCINOMA
     Dosage: 37.5 MG, 1X/DAY
     Route: 048
     Dates: start: 20070601, end: 20100820
  2. DIOVAN HCT [Concomitant]
     Dosage: UNK
  3. EFFEXOR [Concomitant]
     Dosage: UNK
  4. LYRICA [Concomitant]
     Dosage: UNK
  5. ALLOPURINOL [Concomitant]
     Dosage: UNK

REACTIONS (3)
  - NEUROPATHY PERIPHERAL [None]
  - PALMAR-PLANTAR ERYTHRODYSAESTHESIA SYNDROME [None]
  - SKIN EXFOLIATION [None]
